FAERS Safety Report 20163228 (Version 2)
Quarter: 2022Q1

REPORT INFORMATION
  Report Type: Report from Study
  Country: US (occurrence: US)
  Receive Date: 20211209
  Receipt Date: 20220210
  Transmission Date: 20220423
  Serious: Yes (Hospitalization)
  Sender: FDA-Public Use
  Company Number: US-UCBSA-2021056516

PATIENT
  Age: 74 Year
  Sex: Male

DRUGS (1)
  1. LACOSAMIDE [Suspect]
     Active Substance: LACOSAMIDE
     Indication: Seizure
     Dosage: 100MG 1.5 TABLET BID AND 2 TABLET PM

REACTIONS (5)
  - Hospitalisation [Not Recovered/Not Resolved]
  - Tremor [Not Recovered/Not Resolved]
  - Overdose [Unknown]
  - Product use issue [Unknown]
  - Product dose omission issue [Unknown]

NARRATIVE: CASE EVENT DATE: 20211130
